FAERS Safety Report 21984541 (Version 1)
Quarter: 2023Q1

REPORT INFORMATION
  Report Type: Spontaneous
  Country: DE (occurrence: DE)
  Receive Date: 20230213
  Receipt Date: 20230213
  Transmission Date: 20230417
  Serious: Yes (Other)
  Sender: FDA-Public Use
  Company Number: DE-MYLANLABS-2023M1014551

PATIENT
  Age: 79 Year
  Sex: Male

DRUGS (1)
  1. AZACITIDINE [Suspect]
     Active Substance: AZACITIDINE
     Indication: Angioimmunoblastic T-cell lymphoma
     Dosage: 75 MILLIGRAM/SQ. METER, 28D CYCLE (FOR 7 CONSECUTIVE DAYS)
     Route: 058

REACTIONS (1)
  - Atrial flutter [Unknown]
